FAERS Safety Report 12246222 (Version 2)
Quarter: 2016Q2

REPORT INFORMATION
  Report Type: Spontaneous
  Country: BR (occurrence: BR)
  Receive Date: 20160407
  Receipt Date: 20160509
  Transmission Date: 20160815
  Serious: Yes (Death, Other)
  Sender: FDA-Public Use
  Company Number: BR-JNJFOC-20160404136

PATIENT
  Age: 49 Year
  Sex: Female

DRUGS (1)
  1. STELARA [Suspect]
     Active Substance: USTEKINUMAB
     Indication: PSORIASIS
     Route: 058
     Dates: start: 20141215, end: 20150828

REACTIONS (4)
  - Pneumonia [Fatal]
  - Cardiac arrest [Fatal]
  - Pulmonary oedema [Fatal]
  - Drug dose omission [Unknown]

NARRATIVE: CASE EVENT DATE: 201511
